FAERS Safety Report 9769688 (Version 2)
Quarter: 2013Q4

REPORT INFORMATION
  Report Type: Spontaneous
  Country: US (occurrence: US)
  Receive Date: 20131218
  Receipt Date: 20131218
  Transmission Date: 20140711
  Serious: No
  Sender: FDA-Public Use
  Company Number: US-VERTEX PHARMACEUTICALS INC-AE-2011-000367

PATIENT
  Age: 50 Year
  Sex: Male
  Weight: 78.47 kg

DRUGS (6)
  1. INCIVEK [Suspect]
     Indication: HEPATITIS C
     Route: 048
     Dates: start: 20110624
  2. PEGINTERFERON ALFA-2A [Concomitant]
     Indication: HEPATITIS C
     Route: 058
     Dates: start: 20110624
  3. RIBAVIRIN [Concomitant]
     Indication: HEPATITIS C
     Route: 048
     Dates: start: 20110624
  4. SYNTHROID [Concomitant]
     Indication: THYROID DISORDER
  5. LEXAPRO [Concomitant]
     Route: 048
     Dates: start: 20110620
  6. CRESTOR [Concomitant]
     Route: 048
     Dates: start: 2009

REACTIONS (6)
  - Headache [Not Recovered/Not Resolved]
  - Rash pruritic [Recovered/Resolved]
  - Fatigue [Not Recovered/Not Resolved]
  - Nausea [Not Recovered/Not Resolved]
  - Vomiting [Recovered/Resolved]
  - Pruritus generalised [Not Recovered/Not Resolved]
